FAERS Safety Report 6922920-6 (Version None)
Quarter: 2010Q3

REPORT INFORMATION
  Report Type: 
  Country: None (occurrence: None)
  Receive Date: 20100813
  Receipt Date: 20100802
  Transmission Date: 20110219
  Serious: Yes (Hospitalization, Other)
  Sender: FDA-Public Use
  Company Number: PHHY2010FR51497

PATIENT
  Sex: Female

DRUGS (10)
  1. VOLTARENE SR [Suspect]
     Indication: SPINAL COMPRESSION FRACTURE
     Dosage: 75 MG DAILY
     Route: 048
     Dates: start: 20100205, end: 20100311
  2. TAREG [Concomitant]
     Indication: HYPERTENSION
     Dosage: 160 MG DAILY
     Route: 048
     Dates: start: 20090101
  3. ACTONEL [Concomitant]
     Indication: OSTEOPOROSIS
     Dosage: 35 MG WEEKLY
     Route: 048
     Dates: start: 20090101
  4. AERIUS [Concomitant]
     Indication: RHINITIS ALLERGIC
     Dosage: 5 MG DAILY
     Route: 048
     Dates: start: 20090101
  5. ALLOPURINOL [Concomitant]
     Indication: GOUT
     Dosage: 300 MG DAILY
     Route: 048
     Dates: start: 20090101
  6. LASIX [Concomitant]
     Indication: HYPERTENSION
     Dosage: 80 MG DAILY
     Route: 048
     Dates: start: 20090101
  7. NASONEX [Concomitant]
     Indication: RHINITIS ALLERGIC
     Dosage: 2 NASAL PULVERIZATION PER DAY
     Route: 045
     Dates: start: 20090101
  8. SERETIDE DISKUS [Concomitant]
     Indication: ASTHMA
     Dosage: 500/50 MCG
     Dates: start: 20090101
  9. SINGULAIR [Concomitant]
     Indication: ASTHMA
     Dosage: 10 MG DAILY
     Route: 048
     Dates: start: 20090101, end: 20100312
  10. SPIRIVA [Concomitant]
     Indication: ASTHMA
     Dosage: 18 MCG DAILY
     Route: 048
     Dates: start: 20090101

REACTIONS (4)
  - DEHYDRATION [None]
  - RENAL FAILURE ACUTE [None]
  - SYSTEMIC INFLAMMATORY RESPONSE SYNDROME [None]
  - VOMITING [None]
